FAERS Safety Report 8487711-6 (Version None)
Quarter: 2012Q2

REPORT INFORMATION
  Report Type: 
  Country: None (occurrence: None)
  Receive Date: 20120402
  Receipt Date: 20100323
  Transmission Date: 20120825
  Serious: Yes (Other)
  Sender: FDA-Public Use
  Company Number: PHEH2010US02257

PATIENT
  Sex: Female

DRUGS (6)
  1. EXFORGE [Suspect]
     Indication: HYPERTENSION
     Dosage: ORAL
     Route: 048
     Dates: start: 20091104, end: 20100205
  2. LAMISIL [Concomitant]
  3. FOSAMAX [Concomitant]
  4. VYTORIN [Concomitant]
  5. HYDROCHLOROTHIAZIDE [Suspect]
     Indication: HYPERTENSION
     Dosage: ORAL
     Route: 048
     Dates: start: 20091104, end: 20100214
  6. VALTURNA [Concomitant]

REACTIONS (4)
  - RASH [None]
  - ERYTHEMA [None]
  - URTICARIA [None]
  - PRURITUS [None]
